FAERS Safety Report 13920556 (Version 3)
Quarter: 2018Q1

REPORT INFORMATION
  Report Type: Report from Study
  Country: BR (occurrence: BR)
  Receive Date: 20170830
  Receipt Date: 20180103
  Transmission Date: 20180508
  Serious: Yes (Other)
  Sender: FDA-Public Use
  Company Number: PHHY2017BR126212

PATIENT
  Sex: Female
  Weight: 50 kg

DRUGS (8)
  1. DIOVAN [Suspect]
     Active Substance: VALSARTAN
     Indication: HYPERTENSION
     Dosage: 160 MG, QD (7 MONTHS AGO)
     Route: 048
     Dates: start: 2017
  2. ROSUVASTATIN. [Concomitant]
     Active Substance: ROSUVASTATIN
     Indication: CARDIAC DISORDER
     Dosage: 1 DF, QD
     Route: 048
  3. EXODUS//NICOTINE [Concomitant]
     Active Substance: NICOTINE
     Indication: ANXIETY
     Dosage: 1 DF, QD (SINCE A LONG TIME AGO)
     Route: 048
  4. CONCARDIO [Concomitant]
     Active Substance: BISOPROLOL FUMARATE
     Indication: CARDIAC DISORDER
     Dosage: 1 DF, QD (SINCE 1 YEAR AGO)
     Route: 048
  5. ACLASTA [Suspect]
     Active Substance: ZOLEDRONIC ACID
     Indication: OSTEOPOROSIS
     Dosage: 1 DF (5 MG/100 ML), Q12MO
     Route: 042
     Dates: start: 20170613
  6. SOMALGIN [Concomitant]
     Active Substance: ASPIRIN\DIHYDROXYALUMINUM AMINOACETATE ANHYDROUS\MAGNESIUM CARBONATE
     Indication: MYOCARDIAL INFARCTION
     Dosage: 1 DF, QD (SINCE 1 YEAR AGO)
     Route: 065
  7. OSTEOBAN [Concomitant]
     Indication: PRODUCT USED FOR UNKNOWN INDICATION
     Route: 065
  8. PROTOS [Concomitant]
     Indication: PRODUCT USED FOR UNKNOWN INDICATION
     Route: 065

REACTIONS (6)
  - Asthenia [Unknown]
  - Haemorrhage [Unknown]
  - Weight increased [Unknown]
  - Hypoacusis [Unknown]
  - Vaginal haemorrhage [Recovered/Resolved]
  - Anxiety [Unknown]
